FAERS Safety Report 5579992-3 (Version None)
Quarter: 2007Q4

REPORT INFORMATION
  Report Type: 
  Country: None (occurrence: None)
  Receive Date: 20071227
  Receipt Date: 20071214
  Transmission Date: 20080405
  Serious: Yes (Other)
  Sender: FDA-Public Use
  Company Number: WAES 0712USA08313

PATIENT
  Age: 82 Year
  Sex: Female

DRUGS (4)
  1. ZETIA [Suspect]
     Indication: HYPERCHOLESTEROLAEMIA
     Dosage: 10 MG/DAILY PO
     Route: 048
     Dates: start: 20071005, end: 20071119
  2. ASPIRIN [Concomitant]
  3. ROSUVASTATIN CALCIUM [Concomitant]
  4. THYROID TAB [Concomitant]

REACTIONS (2)
  - EOSINOPHIL COUNT INCREASED [None]
  - WHITE BLOOD CELL COUNT DECREASED [None]
